FAERS Safety Report 7149433-3 (Version None)
Quarter: 2010Q4

REPORT INFORMATION
  Report Type: 
  Country: None (occurrence: None)
  Receive Date: 20101209
  Receipt Date: 20100826
  Transmission Date: 20110411
  Serious: No
  Sender: FDA-Public Use
  Company Number: US-KINGPHARMUSA00001-K201001103

PATIENT
  Age: 60 Year
  Sex: Female
  Weight: 86.168 kg

DRUGS (3)
  1. EMBEDA [Suspect]
     Indication: PAIN
     Dosage: 20 MG, BID
     Route: 048
     Dates: start: 20100801
  2. EMBEDA [Suspect]
     Indication: FIBROMYALGIA
  3. HAWTHORN [Concomitant]
     Indication: CARDIAC DISORDER
     Dosage: UNK GTT, UNK

REACTIONS (2)
  - CONSTIPATION [None]
  - DIARRHOEA [None]
